FAERS Safety Report 6683087-5 (Version None)
Quarter: 2010Q2

REPORT INFORMATION
  Report Type: 
  Country: None (occurrence: None)
  Receive Date: 20100415
  Receipt Date: 20100412
  Transmission Date: 20101027
  Serious: Yes (Hospitalization)
  Sender: FDA-Public Use
  Company Number: PHHY2010JP12882

PATIENT
  Sex: Male
  Weight: 50 kg

DRUGS (10)
  1. COMTAN CMT+TAB [Suspect]
     Indication: DRUG EFFECT DECREASED
     Dosage: 300 MG, UNK
     Route: 048
     Dates: start: 20090129, end: 20090820
  2. LEVODOPA BENSERAZIDE HYDROCHLO [Concomitant]
     Indication: PARKINSON'S DISEASE
     Dosage: 150 MG, UNK
     Route: 048
     Dates: start: 20070329
  3. LEVODOPA BENSERAZIDE HYDROCHLO [Concomitant]
     Dosage: 300 MG, UNK
     Route: 048
  4. MADOPAR [Concomitant]
     Indication: PARKINSON'S DISEASE
     Dosage: 300 MG, UNK
     Dates: start: 20080410
  5. JUVELA [Concomitant]
     Dosage: 400 MG, UNK
     Route: 048
  6. PANALDINE [Concomitant]
     Dosage: 100 MG, UNK
     Route: 048
  7. TAMSULOSIN HCL [Concomitant]
     Dosage: 0.2 MG, UNK
     Route: 048
  8. CONIEL [Concomitant]
     Dosage: 4 MG, UNK
     Route: 048
  9. MAGLAX [Concomitant]
     Dosage: 1980 MG, UNK
     Route: 048
  10. ALFAROL [Concomitant]
     Dosage: 1 UG, UNK
     Route: 048

REACTIONS (3)
  - DRUG INEFFECTIVE [None]
  - HEPATIC FUNCTION ABNORMAL [None]
  - PNEUMONIA [None]
